FAERS Safety Report 12840703 (Version 1)
Quarter: 2016Q4

REPORT INFORMATION
  Report Type: Spontaneous
  Country: IE (occurrence: IE)
  Receive Date: 20161012
  Receipt Date: 20161012
  Transmission Date: 20170207
  Serious: Yes (Other)
  Sender: FDA-Public Use
  Company Number: IE-PFIZER INC-2016453386

PATIENT
  Sex: Male

DRUGS (1)
  1. SUTENT [Suspect]
     Active Substance: SUNITINIB MALATE
     Indication: METASTATIC RENAL CELL CARCINOMA
     Dosage: 50, CYCLIC (4/2 AS SCHEDULE)
     Dates: start: 20111128

REACTIONS (4)
  - Tumour pain [Unknown]
  - Dyspepsia [Unknown]
  - Dry skin [Unknown]
  - Infection [Unknown]
